FAERS Safety Report 10535719 (Version 1)
Quarter: 2014Q4

REPORT INFORMATION
  Report Type: Spontaneous
  Country: US (occurrence: US)
  Receive Date: 20141022
  Receipt Date: 20141022
  Transmission Date: 20150529
  Serious: No
  Sender: FDA-Public Use
  Company Number: US-RECKITT BENCKISER PHARMACEUTICAL, INC-RB-59798-2013

PATIENT

DRUGS (2)
  1. BUPRENORPHINE GENERIC [Suspect]
     Active Substance: BUPRENORPHINE
     Indication: PAIN
     Dosage: DOSING DETAILS UNKNOWN
     Route: 060
  2. SUBOXONE [Suspect]
     Active Substance: BUPRENORPHINE HYDROCHLORIDE\NALOXONE HYDROCHLORIDE
     Indication: PAIN
     Dosage: SUBOXONE FILM
     Route: 060

REACTIONS (3)
  - Wrong technique in drug usage process [Not Recovered/Not Resolved]
  - Drug dependence [Not Recovered/Not Resolved]
  - Off label use [Not Recovered/Not Resolved]
